FAERS Safety Report 24006174 (Version 1)
Quarter: 2024Q2

REPORT INFORMATION
  Report Type: Spontaneous
  Country: FR (occurrence: None)
  Receive Date: 20240624
  Receipt Date: 20240624
  Transmission Date: 20240716
  Serious: Yes (Death)
  Sender: FDA-Public Use
  Company Number: 2024A141908

PATIENT
  Age: 43 Year
  Sex: Male

DRUGS (15)
  1. TICAGRELOR [Suspect]
     Active Substance: TICAGRELOR
     Indication: Antiplatelet therapy
     Route: 048
     Dates: start: 20240504, end: 20240505
  2. TIROFIBAN HYDROCHLORIDE [Suspect]
     Active Substance: TIROFIBAN HYDROCHLORIDE
     Indication: Antiplatelet therapy
     Dosage: 7590UG/INHAL DAILY
     Route: 040
     Dates: start: 20240504, end: 20240505
  3. HEPARIN SODIUM [Suspect]
     Active Substance: HEPARIN SODIUM
     Indication: Anticoagulant therapy
     Dates: start: 20240504, end: 20240505
  4. KARDEGIC [Suspect]
     Active Substance: ASPIRIN DL-LYSINE
     Indication: Product used for unknown indication
     Dates: start: 20240504, end: 20240505
  5. ASPIRIN [Suspect]
     Active Substance: ASPIRIN
     Indication: Antiplatelet therapy
     Route: 040
     Dates: start: 20240504, end: 20240505
  6. CORDARONE [Concomitant]
     Active Substance: AMIODARONE HYDROCHLORIDE
  7. NOREPINEPHRINE [Concomitant]
     Active Substance: NOREPINEPHRINE\NOREPINEPHRINE BITARTRATE
  8. ATROPINE [Concomitant]
     Active Substance: ATROPINE\ATROPINE SULFATE
  9. DOBUTAMINE HYDROCHLORIDE [Concomitant]
     Active Substance: DOBUTAMINE HYDROCHLORIDE
  10. LIDOCAINE HYDROCHLORIDE [Concomitant]
     Active Substance: LIDOCAINE HYDROCHLORIDE
  11. CISATRACURIUM [Concomitant]
     Active Substance: CISATRACURIUM
  12. MIDAZOLAM [Concomitant]
     Active Substance: MIDAZOLAM
  13. AUGMENTIN [Concomitant]
     Active Substance: AMOXICILLIN\CLAVULANATE POTASSIUM
  14. ATORVASTATIN [Concomitant]
     Active Substance: ATORVASTATIN
  15. SUFENTANIL [Concomitant]
     Active Substance: SUFENTANIL

REACTIONS (1)
  - Subarachnoid haemorrhage [Fatal]

NARRATIVE: CASE EVENT DATE: 20240505
